FAERS Safety Report 7889970-7 (Version None)
Quarter: 2011Q4

REPORT INFORMATION
  Report Type: 
  Country: None (occurrence: None)
  Receive Date: 20111103
  Receipt Date: 20111027
  Transmission Date: 20120403
  Serious: Yes (Other)
  Sender: FDA-Public Use
  Company Number: PHHY2011BR86881

PATIENT
  Age: 45 Year
  Sex: Female
  Weight: 82 kg

DRUGS (10)
  1. GALVUS MET [Suspect]
     Dosage: 500 MG METF AND 50 MG VILD
  2. CRESTOR [Suspect]
     Dosage: 20 MG, UNK
  3. EXFORGE [Suspect]
     Dosage: 320 MG VALS AND 5 MG AMLO
  4. EXFORGE [Suspect]
     Indication: HYPERTENSION
     Dosage: 160 MG VALS AND 5 MG AMLO
  5. ISOSORBIDE MONONITRATE [Suspect]
     Dosage: 50 MG/DAY
  6. CITALOPRAM HYDROBROMIDE [Suspect]
     Dosage: 20 MG, UNK
  7. METOPROLOL SUCCINATE [Suspect]
     Dosage: 100 MG, UNK
  8. ASPIRIN [Suspect]
     Dosage: 200 MG, UNK
  9. CILOSTAZOL [Suspect]
     Dosage: 200 MG/DAY
  10. ROSUVASTATIN [Concomitant]
     Dosage: 20 MG, DAILY

REACTIONS (3)
  - ERYSIPELAS [None]
  - MYOCARDIAL INFARCTION [None]
  - TRANSIENT ISCHAEMIC ATTACK [None]
